FAERS Safety Report 4576141-5 (Version None)
Quarter: 2005Q1

REPORT INFORMATION
  Report Type: 
  Country: None (occurrence: None)
  Receive Date: 20050201
  Receipt Date: 20050201
  Transmission Date: 20050727
  Serious: Yes (Other)
  Sender: FDA-Public Use
  Company Number: None

PATIENT
  Age: 34 Year
  Sex: Female
  Weight: 113 kg

DRUGS (1)
  1. ZELNORM [Suspect]
     Dosage: 3 MG/0.5 TAB   BID  ORAL
     Route: 048
     Dates: start: 20050128, end: 20050128

REACTIONS (2)
  - RASH [None]
  - RESPIRATORY DEPRESSION [None]
